FAERS Safety Report 7731736-2 (Version None)
Quarter: 2011Q3

REPORT INFORMATION
  Report Type: 
  Country: None (occurrence: None)
  Receive Date: 20110906
  Receipt Date: 20110628
  Transmission Date: 20111222
  Serious: No
  Sender: FDA-Public Use
  Company Number: US-AMGEN-USASP2011033084

PATIENT
  Sex: Female

DRUGS (10)
  1. PROLIA [Suspect]
     Indication: OSTEOPOROSIS
     Dosage: 60 MG, Q6MO
     Dates: start: 20110101
  2. PREVACID [Concomitant]
  3. POTASSIUM CHLORIDE [Concomitant]
  4. SELENIUM [Concomitant]
  5. FUROSEMIDE [Concomitant]
  6. PREDNISONE [Concomitant]
     Indication: SARCOIDOSIS
  7. CALCIUM CARBONATE [Concomitant]
  8. VITAMIN D [Concomitant]
     Dosage: 1 IU, UNK
  9. ARIMIDEX [Concomitant]
  10. COUMADIN [Concomitant]
     Dates: start: 19980101

REACTIONS (1)
  - IMPAIRED HEALING [None]
